FAERS Safety Report 25386097 (Version 2)
Quarter: 2025Q2

REPORT INFORMATION
  Report Type: Spontaneous
  Country: RU (occurrence: RU)
  Receive Date: 20250602
  Receipt Date: 20250613
  Transmission Date: 20250716
  Serious: Yes (Other)
  Sender: RANBAXY
  Company Number: RU-SUN PHARMACEUTICAL INDUSTRIES LTD-2025R1-509396

PATIENT
  Age: 11 Year
  Sex: Male

DRUGS (3)
  1. FLUCONAZOLE [Interacting]
     Active Substance: FLUCONAZOLE
     Indication: Gilbert^s syndrome
     Route: 065
  2. IVACAFTOR [Interacting]
     Active Substance: IVACAFTOR
     Indication: Gilbert^s syndrome
     Route: 048
  3. IVACAFTOR [Interacting]
     Active Substance: IVACAFTOR
     Route: 048

REACTIONS (3)
  - Drug interaction [Unknown]
  - Drug-induced liver injury [Unknown]
  - Self-medication [Unknown]
